FAERS Safety Report 5189883-8 (Version None)
Quarter: 2006Q4

REPORT INFORMATION
  Report Type: 
  Country: None (occurrence: None)
  Receive Date: 20061218
  Receipt Date: 20061206
  Transmission Date: 20070319
  Serious: Yes (Other)
  Sender: FDA-Public Use
  Company Number: 2006118692

PATIENT
  Age: 63 Year
  Sex: Male
  Weight: 113.3993 kg

DRUGS (4)
  1. CELEBREX [Suspect]
     Dosage: 220 MG
  2. ALEVE [Suspect]
     Indication: HEADACHE
     Dosage: 440 MG, ORAL
     Route: 048
     Dates: start: 20060917
  3. CLARITIN-D [Concomitant]
  4. NEXIUM [Concomitant]

REACTIONS (12)
  - APHASIA [None]
  - BLOOD PRESSURE DECREASED [None]
  - CHEST PAIN [None]
  - CONVULSION [None]
  - ERYTHEMA [None]
  - HYPERHIDROSIS [None]
  - LOSS OF CONSCIOUSNESS [None]
  - NASOPHARYNGITIS [None]
  - PHARYNGEAL OEDEMA [None]
  - SYNCOPE [None]
  - TREATMENT NONCOMPLIANCE [None]
  - VISION BLURRED [None]
